FAERS Safety Report 5253175-9 (Version None)
Quarter: 2007Q1

REPORT INFORMATION
  Report Type: 
  Country: None (occurrence: None)
  Receive Date: 20070301
  Receipt Date: 20070216
  Transmission Date: 20070707
  Serious: Yes (Other)
  Sender: FDA-Public Use
  Company Number: PHEH2007US02050

PATIENT
  Age: 40 Year
  Sex: Female

DRUGS (2)
  1. GLEEVEC [Suspect]
     Indication: CHRONIC MYELOID LEUKAEMIA
     Dosage: 400 MG, QD
     Route: 048
     Dates: start: 20061004, end: 20061021
  2. GLEEVEC [Suspect]
     Dosage: 300 MG, QD
     Route: 048
     Dates: start: 20061031

REACTIONS (7)
  - BLOOD BILIRUBIN INCREASED [None]
  - CONSTIPATION [None]
  - DIARRHOEA [None]
  - DIASTOLIC HYPOTENSION [None]
  - DIZZINESS [None]
  - TACHYARRHYTHMIA [None]
  - VOMITING [None]
